FAERS Safety Report 25041704 (Version 1)
Quarter: 2025Q1

REPORT INFORMATION
  Report Type: Spontaneous
  Country: US (occurrence: None)
  Receive Date: 20250305
  Receipt Date: 20250305
  Transmission Date: 20250408
  Serious: Yes (Hospitalization)
  Sender: FDA-CTU
  Company Number: None

PATIENT
  Age: 61 Year
  Sex: Male

DRUGS (1)
  1. ABIRATERONE ACETATE [Suspect]
     Active Substance: ABIRATERONE ACETATE
     Indication: Prostate cancer
     Dosage: 1000 MG BY MOUTH DAILY ORAL
     Route: 048
     Dates: start: 20231107

REACTIONS (2)
  - Urinary bladder haemorrhage [None]
  - Intentional dose omission [None]

NARRATIVE: CASE EVENT DATE: 20250212
